FAERS Safety Report 15334354 (Version 1)
Quarter: 2018Q3

REPORT INFORMATION
  Report Type: Spontaneous
  Country: IT (occurrence: IT)
  Receive Date: 20180830
  Receipt Date: 20180830
  Transmission Date: 20181010
  Serious: Yes (Other)
  Sender: FDA-Public Use
  Company Number: IT-MYLANLABS-2018M1063573

PATIENT
  Age: 6 Decade
  Sex: Female

DRUGS (6)
  1. ERIBULIN MESYLATE [Suspect]
     Active Substance: ERIBULIN MESYLATE
     Indication: INVASIVE LOBULAR BREAST CARCINOMA
     Dosage: ADMINISTERED ON DAYS 1 AND 8 OF A 21?DAY CYCLE
     Route: 065
  2. EVEROLIMUS. [Suspect]
     Active Substance: EVEROLIMUS
     Indication: INVASIVE LOBULAR BREAST CARCINOMA
     Dosage: FIRST LINE TREATMENT
     Route: 065
  3. ZOLEDRONIC ACID [Suspect]
     Active Substance: ZOLEDRONIC ACID
     Indication: INVASIVE LOBULAR BREAST CARCINOMA
     Dosage: FIRST LINE TREATMENT
     Route: 065
     Dates: end: 201502
  4. EXEMESTANE. [Suspect]
     Active Substance: EXEMESTANE
     Indication: INVASIVE LOBULAR BREAST CARCINOMA
     Dosage: FIRST LINE TREATMENT
     Route: 065
  5. PACLITAXEL. [Suspect]
     Active Substance: PACLITAXEL
     Indication: INVASIVE LOBULAR BREAST CARCINOMA
     Dosage: TRI?WEEKLY, FIRST LINE TREATMENT
     Route: 065
     Dates: end: 201502
  6. FULVESTRANT. [Concomitant]
     Active Substance: FULVESTRANT
     Indication: DISEASE PROGRESSION
     Dosage: SECOND LINE THERAPY
     Route: 065
     Dates: start: 201311

REACTIONS (4)
  - Mucosal inflammation [Unknown]
  - Neuropathy peripheral [Unknown]
  - Alopecia [Unknown]
  - Asthenia [Unknown]
